FAERS Safety Report 25314260 (Version 1)
Quarter: 2025Q2

REPORT INFORMATION
  Report Type: Spontaneous
  Country: US (occurrence: US)
  Receive Date: 20250514
  Receipt Date: 20250514
  Transmission Date: 20250716
  Serious: No
  Sender: MEDEXUS PHARMA
  Company Number: US-MEDEXUS PHARMA, INC.-2025MED00108

PATIENT

DRUGS (1)
  1. GRAFAPEX [Suspect]
     Active Substance: TREOSULFAN
     Indication: Stem cell transplant

REACTIONS (5)
  - Rash [Unknown]
  - Pruritus [Unknown]
  - Skin irritation [Unknown]
  - Skin exfoliation [Unknown]
  - Toxic erythema of chemotherapy [Recovered/Resolved]
